FAERS Safety Report 21096971 (Version 1)
Quarter: 2022Q3

REPORT INFORMATION
  Report Type: Spontaneous
  Country: US (occurrence: US)
  Receive Date: 20220718
  Receipt Date: 20220718
  Transmission Date: 20221027
  Serious: Yes (Hospitalization, Other)
  Sender: FDA-Public Use
  Company Number: US-BRISTOL-MYERS SQUIBB COMPANY-BMS-2022-039628

PATIENT
  Age: 78 Year
  Sex: Female
  Weight: 77.11 kg

DRUGS (1)
  1. ELIQUIS [Suspect]
     Active Substance: APIXABAN
     Indication: Cerebrovascular accident prophylaxis
     Dosage: 5MG, BID
     Route: 048
     Dates: start: 2018

REACTIONS (5)
  - Diffuse large B-cell lymphoma [Unknown]
  - Metastases to adrenals [Unknown]
  - Weight decreased [Unknown]
  - Physical disability [Unknown]
  - Memory impairment [Unknown]

NARRATIVE: CASE EVENT DATE: 20210901
